FAERS Safety Report 26155522 (Version 1)
Quarter: 2025Q4

REPORT INFORMATION
  Report Type: Spontaneous
  Country: EU (occurrence: EU)
  Receive Date: 20251215
  Receipt Date: 20251215
  Transmission Date: 20260117
  Serious: No
  Sender: ALKEM
  Company Number: EU-ALKEM LABORATORIES LIMITED-CN-ALKEM-2025-09247

PATIENT

DRUGS (2)
  1. TACROLIMUS [Interacting]
     Active Substance: TACROLIMUS
     Indication: Product used for unknown indication
     Dosage: UNK
     Route: 065
  2. CLINDAMYCIN [Interacting]
     Active Substance: CLINDAMYCIN
     Indication: Product used for unknown indication
     Dosage: 2400 MILLIGRAM, QD
     Route: 048

REACTIONS (1)
  - Drug interaction [Unknown]
